FAERS Safety Report 7427958-0 (Version None)
Quarter: 2011Q2

REPORT INFORMATION
  Report Type: 
  Country: None (occurrence: None)
  Receive Date: 20110421
  Receipt Date: 20110321
  Transmission Date: 20111010
  Serious: Yes (Other)
  Sender: FDA-Public Use
  Company Number: US-BAYER-2010-003182

PATIENT
  Age: 23 Year
  Sex: Female
  Weight: 54.422 kg

DRUGS (12)
  1. LEVAQUIN [Concomitant]
     Dosage: 500 MG, QD
  2. LEVSIN [Concomitant]
     Dosage: UNK
     Route: 060
  3. VICODIN [Concomitant]
     Dosage: 1 DF, Q4HR
  4. KETEK [Concomitant]
     Dosage: 400 MG, BID
  5. YASMIN [Suspect]
     Indication: MENSTRUATION IRREGULAR
     Dosage: UNK
     Route: 048
     Dates: start: 20030101, end: 20081101
  6. AMOXICILLIN [Concomitant]
     Dosage: 500 MG, TID
  7. CLARINEX [Concomitant]
     Dosage: 5 MG, QD
  8. ZYRTEC [Concomitant]
     Dosage: 1 DF, QD
  9. OCELLA [Suspect]
     Indication: MENSTRUATION IRREGULAR
     Dosage: UNK
     Route: 048
     Dates: start: 20030101, end: 20081101
  10. NASONEX [Concomitant]
  11. FLONASE [Concomitant]
  12. ALLEGRA [Concomitant]
     Dosage: UNK UNK, BID

REACTIONS (3)
  - PAIN [None]
  - BILIARY DYSKINESIA [None]
  - GALLBLADDER DISORDER [None]
